FAERS Safety Report 7426511-2 (Version None)
Quarter: 2011Q2

REPORT INFORMATION
  Report Type: 
  Country: None (occurrence: None)
  Receive Date: 20110420
  Receipt Date: 20110414
  Transmission Date: 20111010
  Serious: Yes (Death, Life-Threatening, Hospitalization, Other)
  Sender: FDA-Public Use
  Company Number: FR-PFIZER INC-2010129791

PATIENT
  Age: 79 Year
  Sex: Female
  Weight: 103 kg

DRUGS (43)
  1. INIPOMP [Concomitant]
     Dosage: 40 MG, 1X/DAY
     Route: 042
     Dates: start: 20100925, end: 20101007
  2. NORADRENALINE [Concomitant]
     Indication: HYPOTENSION
     Dosage: 0.03 MCG/KG/MIN, CONTINUOUS
     Route: 042
     Dates: start: 20101004, end: 20101009
  3. PHOCYTAN [Concomitant]
     Indication: HYPOPHOSPHATAEMIA
     Dosage: 50 MG, 1X/DAY
     Route: 042
     Dates: start: 20100928, end: 20100929
  4. PARACETAMOL [Concomitant]
     Indication: ANALGESIC THERAPY
     Dosage: 1000 MG, 4X/DAY
     Route: 042
     Dates: start: 20100925, end: 20101002
  5. TEICOPLANIN [Concomitant]
     Indication: PNEUMONIA
     Dosage: 400 MG, PER 72 HOURS
     Route: 042
     Dates: start: 20100925, end: 20100928
  6. ALBUMIN NORMAL HUMAN SERUM [Concomitant]
     Indication: HYPOVOLAEMIA
     Dosage: 20 G, 1X/DAY
     Route: 042
     Dates: start: 20100925, end: 20100926
  7. INIPOMP [Concomitant]
     Indication: PROPHYLAXIS AGAINST GASTROINTESTINAL ULCER
     Dosage: 40 MG, 1X/DAY
     Route: 042
     Dates: start: 20100916, end: 20100924
  8. ASPEGIC 325 [Concomitant]
     Indication: ACUTE CORONARY SYNDROME
     Dosage: 125 MG, 1X/DAY
     Route: 042
     Dates: start: 20100916, end: 20100921
  9. TAZOCILLINE [Concomitant]
     Dosage: 4 G, 2X/DAY
     Route: 042
     Dates: start: 20100915, end: 20100924
  10. CHINOMILLE [Concomitant]
     Indication: MEDICAL DIET
     Dosage: 1000 ML, CONTINUOUS
     Route: 042
     Dates: start: 20101004, end: 20101009
  11. SODIUM CHLORIDE [Concomitant]
     Indication: ENTERAL NUTRITION
     Dosage: 500 ML, 1X/DAY
     Route: 050
     Dates: start: 20100929, end: 20101002
  12. LIPIDS NOS [Concomitant]
     Dosage: 1000 ML, CONTINUOUS
     Route: 042
     Dates: start: 20100916, end: 20100924
  13. INSULIN [Concomitant]
     Dosage: 6 UNITS, 1X/DAY
     Route: 058
     Dates: start: 20100919, end: 20100920
  14. EPOPROSTENOL [Concomitant]
     Indication: VASODILATION PROCEDURE
     Dosage: 500 MG IN 50 ML, CONTINUOUS
     Route: 042
     Dates: start: 20100925, end: 20101002
  15. VALIUM [Concomitant]
     Dosage: 1 MG/HR, CONTINOUS
     Route: 042
     Dates: start: 20100916, end: 20100922
  16. TARGOCID [Concomitant]
     Indication: STAPHYLOCOCCAL INFECTION
     Dosage: 200 MG, 2X/DAY
     Route: 042
     Dates: start: 20100923, end: 20101009
  17. TAZOCILLINE [Concomitant]
     Indication: PNEUMONIA
     Dosage: 4 G, 2X/DAY
     Route: 042
     Dates: start: 20100925, end: 20101007
  18. RED BLOOD CELLS [Concomitant]
     Dosage: 2 UNITS, DAILY
     Route: 042
     Dates: start: 20100925, end: 20100925
  19. PANTOPRAZOLE [Concomitant]
     Indication: GASTRIC ULCER
     Dosage: 40 MG, 1X/DAY
     Route: 042
     Dates: start: 20100925, end: 20101007
  20. FOLINIC ACID [Concomitant]
     Indication: HYPOVITAMINOSIS
     Dosage: 50 MG, CONTINUOUS
     Route: 042
     Dates: start: 20100925, end: 20101007
  21. PHOCYTAN [Concomitant]
     Dosage: 20 ML, 1X/DAY
     Route: 042
     Dates: start: 20100920, end: 20100924
  22. LIPIDS NOS [Concomitant]
     Indication: PARENTERAL NUTRITION
     Dosage: 1000 ML, 1X/DAY
     Route: 042
     Dates: start: 20100927, end: 20101002
  23. ACUPAN [Concomitant]
     Indication: PROCEDURAL PAIN
     Dosage: 3.3 MG/HR, CONTINUOUS
     Route: 042
     Dates: start: 20100916, end: 20100923
  24. ARGATROBAN [Suspect]
     Indication: HEPARIN-INDUCED THROMBOCYTOPENIA
     Dosage: 576 MCG/KG (0.4 MCG/KG, 1 IN 1 MIN)
     Route: 042
     Dates: start: 20100922, end: 20101008
  25. ASPEGIC 325 [Concomitant]
     Indication: ANTICOAGULANT THERAPY
     Dosage: 100 MG, 1X/DAY
     Route: 042
     Dates: start: 20100925, end: 20101007
  26. AMIODARONE [Concomitant]
     Indication: ARRHYTHMIA
     Dosage: 600 MG IN 50 ML, 600 MG, CONTINUOUS
     Route: 042
     Dates: start: 20100928, end: 20101005
  27. PROPOFOL [Concomitant]
     Indication: SEDATION
     Dosage: 500 MG IN 50 ML, CONTINUOUS
     Route: 042
     Dates: start: 20100925, end: 20100927
  28. FLUCONAZOLE [Concomitant]
     Indication: ANTIFUNGAL TREATMENT
     Dosage: 400 MG, 1X/DAY
     Route: 042
     Dates: start: 20100929, end: 20101007
  29. NORADRENALINE [Concomitant]
     Indication: SEPTIC SHOCK
     Dosage: 8 MG IN 48 ML, 8 MG, CONTINUOUS
     Route: 042
     Dates: start: 20100925, end: 20100928
  30. RED BLOOD CELLS [Concomitant]
     Indication: ANAEMIA
     Dosage: 3 UNITS, DAILY
     Route: 042
     Dates: start: 20100926, end: 20100926
  31. INSULIN [Concomitant]
     Indication: DIABETES MELLITUS
     Dosage: 50 IU IN 50 ML, CONTINUOUS
     Route: 042
     Dates: start: 20100925, end: 20101007
  32. INSULIN [Concomitant]
     Dosage: 0.6 UNITS/HR, CONTINUOUS
     Route: 042
     Dates: start: 20100920, end: 20100922
  33. NEFOPAM [Concomitant]
     Indication: ANALGESIC THERAPY
     Dosage: 100 MG, CONTINUOUS
     Route: 042
     Dates: start: 20100924, end: 20100927
  34. VALIUM [Concomitant]
     Indication: PSYCHOTIC DISORDER
     Dosage: 0.5 MG/HR, CONTINUOS
     Route: 042
     Dates: start: 20100922, end: 20100923
  35. TIAPRIDAL [Concomitant]
     Indication: AGITATION
     Dosage: 100 MG, AS NEEDED
     Route: 042
     Dates: start: 20100916, end: 20100924
  36. GLUCIDION [Concomitant]
     Indication: INFUSION
     Dosage: 250 ML, CONTINUOUS
     Route: 042
     Dates: start: 20100923, end: 20101009
  37. NORADRENALINE [Concomitant]
     Indication: BLOOD ANTIDIURETIC HORMONE
     Dosage: 0.2 MCG/KG/MIN, CONTINUOUS
     Route: 042
     Dates: start: 20100915, end: 20100920
  38. FUROSEMIDE [Concomitant]
     Indication: RENAL FAILURE
     Dosage: 40 MG, 1 IN 1 HR
     Route: 042
     Dates: start: 20100928, end: 20101006
  39. FUROSEMIDE [Concomitant]
     Dosage: 20 MG/HR, CONTINUOUS
     Route: 042
     Dates: start: 20100924, end: 20100927
  40. INSULIN [Concomitant]
     Dosage: 1.6 UNITS/HR, CONTINUOUS
     Route: 042
     Dates: start: 20100923, end: 20100924
  41. GELOFUSINE [Concomitant]
     Indication: HYPOVOLAEMIA
     Dosage: 500 ML, 1X/DAY
     Route: 042
     Dates: start: 20100917, end: 20100918
  42. CORDARONE [Concomitant]
     Indication: ATRIAL FIBRILLATION
     Dosage: 600 MG/G, CONTINUOUS
     Route: 042
     Dates: start: 20100916, end: 20100920
  43. EPOETIN BETA [Concomitant]
     Indication: ANAEMIA
     Dosage: 30000 IU, 1X/DAY
     Route: 042
     Dates: start: 20100925, end: 20100925

REACTIONS (3)
  - SEPSIS [None]
  - LUNG DISORDER [None]
  - GENERAL PHYSICAL HEALTH DETERIORATION [None]
